FAERS Safety Report 20201844 (Version 1)
Quarter: 2021Q4

REPORT INFORMATION
  Report Type: Spontaneous
  Country: ES (occurrence: ES)
  Receive Date: 20211217
  Receipt Date: 20211217
  Transmission Date: 20220303
  Serious: Yes (Other)
  Sender: FDA-Public Use
  Company Number: ES-LUNDBECK-DKLU3042152

PATIENT

DRUGS (1)
  1. BRINTELLIX [Suspect]
     Active Substance: VORTIOXETINE HYDROBROMIDE
     Indication: Product used for unknown indication
     Dosage: 700 MILLIGRAM
     Route: 065

REACTIONS (6)
  - Suicide attempt [Unknown]
  - Psychotic disorder [Unknown]
  - Language disorder [Unknown]
  - Psychiatric symptom [Unknown]
  - Intentional overdose [Unknown]
  - Hypomania [Unknown]
